FAERS Safety Report 8145553-5 (Version None)
Quarter: 2012Q1

REPORT INFORMATION
  Report Type: 
  Country: None (occurrence: None)
  Receive Date: 20120217
  Receipt Date: 20110328
  Transmission Date: 20120608
  Serious: No
  Sender: FDA-Public Use
  Company Number: US-ABBOTT-11P-163-0715132-00

PATIENT
  Age: 40 Year
  Sex: Male

DRUGS (1)
  1. SIMCOR [Suspect]
     Indication: BLOOD CHOLESTEROL INCREASED
     Dosage: 750/20MG
     Dates: start: 20100101, end: 20110328

REACTIONS (5)
  - SYNCOPE [None]
  - MIDDLE INSOMNIA [None]
  - FLUSHING [None]
  - LOSS OF CONSCIOUSNESS [None]
  - HEAD INJURY [None]
